FAERS Safety Report 7942137-6 (Version None)
Quarter: 2011Q4

REPORT INFORMATION
  Report Type: 
  Country: None (occurrence: None)
  Receive Date: 20111122
  Receipt Date: 20111109
  Transmission Date: 20120403
  Serious: Yes (Other)
  Sender: FDA-Public Use
  Company Number: 2011-FR-0036

PATIENT
  Age: 86 Year
  Sex: Female

DRUGS (8)
  1. ACETAMINOPHEN [Concomitant]
  2. ATARAX 25 (HYDROXYZINE) [Concomitant]
  3. HEXOMEDINE (HEXAMEDINE) [Concomitant]
  4. FENTANYL [Suspect]
     Indication: PAIN
     Dosage: 200MCGX1 PER DAY SUBLINGUAL
     Route: 060
     Dates: start: 20110819, end: 20110827
  5. POLYETHYLENE GLYCOL [Concomitant]
  6. DURAGESIC-100 [Concomitant]
  7. MOTILIUM [Concomitant]
  8. LASILIX 20 (FUROSEMIDE) [Concomitant]

REACTIONS (2)
  - PRODUCT TASTE ABNORMAL [None]
  - APPLICATION SITE PAIN [None]
